FAERS Safety Report 8594960-5 (Version None)
Quarter: 2012Q3

REPORT INFORMATION
  Report Type: 
  Country: None (occurrence: None)
  Receive Date: 20120815
  Receipt Date: 20120807
  Transmission Date: 20120928
  Serious: Yes (Hospitalization, Other)
  Sender: FDA-Public Use
  Company Number: PHHY2012BR069197

PATIENT
  Sex: Male

DRUGS (8)
  1. AMLODIPINE BESYLATE [Concomitant]
     Dosage: 2 DF, QD
  2. VORTEC [Concomitant]
     Indication: PRURITUS
     Dosage: 1 DF, QD
     Route: 048
  3. FORMOTEROL FUMARATE [Suspect]
     Dosage: 1 DF, QD
     Dates: start: 20120601
  4. LEVOTHYROXINE SODIUM [Concomitant]
     Indication: THYROID DISORDER
     Dosage: 125 MG, QD
  5. PANTOPRAZOLE [Concomitant]
     Indication: ABDOMINAL DISCOMFORT
     Dosage: 1 DF, QD
     Route: 048
  6. FORMOTEROL FUMARATE [Suspect]
     Indication: EMPHYSEMA
     Dosage: 1 DF, BID
     Dates: start: 20100101
  7. AMLODIPINE BESYLATE [Concomitant]
     Indication: BLOOD PRESSURE
     Dosage: 1 DF, QD
  8. VENLAFAXINE HYDROCHOLRIDE [Concomitant]
     Dosage: 37.5 MG, UNK

REACTIONS (6)
  - METASTASES TO PROSTATE [None]
  - BLADDER NEOPLASM [None]
  - VOMITING [None]
  - URINARY TRACT INFECTION [None]
  - COUGH [None]
  - BLOOD PRESSURE INCREASED [None]
